FAERS Safety Report 7828773-6 (Version None)
Quarter: 2011Q4

REPORT INFORMATION
  Report Type: 
  Country: None (occurrence: None)
  Receive Date: 20111020
  Receipt Date: 20110505
  Transmission Date: 20120403
  Serious: No
  Sender: FDA-Public Use
  Company Number: US-MYLANLABS-2011S1008176

PATIENT
  Age: 69 Year
  Sex: Male
  Weight: 134.27 kg

DRUGS (4)
  1. CARVEDILOL [Suspect]
     Indication: BLOOD PRESSURE
     Route: 048
     Dates: start: 20091201
  2. CIPROFLOXACIN [Concomitant]
     Indication: INFECTION
     Dates: start: 20110401, end: 20110401
  3. FLOMAX [Concomitant]
     Indication: PROSTATOMEGALY
     Route: 048
     Dates: start: 20110401
  4. GLIPIZIDE [Concomitant]

REACTIONS (3)
  - DYSURIA [None]
  - OEDEMA PERIPHERAL [None]
  - WEIGHT INCREASED [None]
